FAERS Safety Report 6854538-8 (Version None)
Quarter: 2010Q3

REPORT INFORMATION
  Report Type: 
  Country: None (occurrence: None)
  Receive Date: 20100717
  Receipt Date: 20080109
  Transmission Date: 20110219
  Serious: No
  Sender: FDA-Public Use
  Company Number: US-PFIZER INC-2008002769

PATIENT
  Sex: Female
  Weight: 75 kg

DRUGS (4)
  1. CHANTIX [Suspect]
     Indication: SMOKING CESSATION THERAPY
     Route: 048
     Dates: start: 20071101, end: 20071201
  2. VITAMIN C [Concomitant]
     Route: 048
  3. VITAMIN D [Concomitant]
     Route: 048
  4. FOSAMAX PLUS D [Concomitant]
     Route: 048

REACTIONS (2)
  - INSOMNIA [None]
  - POOR QUALITY SLEEP [None]
